FAERS Safety Report 7403017-8 (Version None)
Quarter: 2011Q2

REPORT INFORMATION
  Report Type: 
  Country: None (occurrence: None)
  Receive Date: 20110408
  Receipt Date: 20110110
  Transmission Date: 20111010
  Serious: No
  Sender: FDA-Public Use
  Company Number: US-NOVEN-11US001632

PATIENT
  Age: 84 Year
  Sex: Female

DRUGS (1)
  1. FENTANYL [Suspect]
     Indication: PAIN
     Dosage: 1 PATCH, Q72HRS
     Route: 062

REACTIONS (2)
  - INADEQUATE ANALGESIA [None]
  - PRODUCT QUALITY ISSUE [None]
